FAERS Safety Report 21196469 (Version 1)
Quarter: 2022Q3

REPORT INFORMATION
  Report Type: Report from Study
  Country: CA (occurrence: None)
  Receive Date: 20220810
  Receipt Date: 20220810
  Transmission Date: 20221027
  Serious: Yes (Other)
  Sender: FDA-Public Use
  Company Number: 2022A221198

PATIENT
  Age: 62 Year
  Sex: Female

DRUGS (4)
  1. IMFINZI [Suspect]
     Active Substance: DURVALUMAB
     Indication: Small cell lung cancer extensive stage
     Route: 042
     Dates: start: 20220419, end: 20220613
  2. IMFINZI [Suspect]
     Active Substance: DURVALUMAB
     Indication: Small cell lung cancer extensive stage
     Route: 042
     Dates: start: 20220419, end: 20220509
  3. CARBOPLATIN [Concomitant]
     Active Substance: CARBOPLATIN
  4. ETOPOSIDE [Concomitant]
     Active Substance: ETOPOSIDE

REACTIONS (12)
  - Malignant neoplasm progression [Unknown]
  - Pancreatic toxicity [Unknown]
  - Pancreatitis [Unknown]
  - Hepatic enzyme increased [Unknown]
  - Lipase increased [Unknown]
  - Dyspnoea [Unknown]
  - Weight decreased [Unknown]
  - Cough [Unknown]
  - Asthenia [Unknown]
  - Nausea [Unknown]
  - Insomnia [Unknown]
  - Abdominal pain upper [Unknown]

NARRATIVE: CASE EVENT DATE: 20220101
